FAERS Safety Report 7120567-2 (Version None)
Quarter: 2010Q4

REPORT INFORMATION
  Report Type: 
  Country: None (occurrence: None)
  Receive Date: 20101122
  Receipt Date: 20101122
  Transmission Date: 20110411
  Serious: Yes (Life-Threatening, Hospitalization)
  Sender: FDA-Public Use
  Company Number: None

PATIENT
  Age: 61 Year
  Sex: Female
  Weight: 95.2554 kg

DRUGS (2)
  1. CYMBALTA [Suspect]
     Indication: ANXIETY
     Dosage: 60 MG 1X A DAY ORAL
     Route: 048
     Dates: start: 20100923, end: 20101003
  2. CYMBALTA [Suspect]
     Indication: DEPRESSION
     Dosage: 60 MG 1X A DAY ORAL
     Route: 048
     Dates: start: 20100923, end: 20101003

REACTIONS (7)
  - AMNESIA [None]
  - HYPERTENSION [None]
  - INCORRECT DOSE ADMINISTERED [None]
  - LOSS OF CONSCIOUSNESS [None]
  - PALPITATIONS [None]
  - PRURITUS [None]
  - VISION BLURRED [None]
